FAERS Safety Report 7208475-X (Version None)
Quarter: 2010Q4

REPORT INFORMATION
  Report Type: 
  Country: None (occurrence: None)
  Receive Date: 20101230
  Receipt Date: 20101230
  Transmission Date: 20110411
  Serious: No
  Sender: FDA-Public Use
  Company Number: None

PATIENT

DRUGS (2)
  1. OMEPRAZOLE [Suspect]
     Dosage: 20MG DAILY
  2. GLUCOSOMINE CONDROITIN WITH MSM [Suspect]
     Dosage: 2 PILLS DAILY

REACTIONS (17)
  - CONDUCTION DISORDER [None]
  - CONFUSIONAL STATE [None]
  - DIZZINESS [None]
  - ERYTHEMA [None]
  - FEELING ABNORMAL [None]
  - FEELING HOT [None]
  - HEADACHE [None]
  - INFLUENZA LIKE ILLNESS [None]
  - INSOMNIA [None]
  - NAUSEA [None]
  - PAIN [None]
  - PALPITATIONS [None]
  - PHOTOPHOBIA [None]
  - PHOTOSENSITIVITY REACTION [None]
  - PRODUCT QUALITY ISSUE [None]
  - SOMNOLENCE [None]
  - TACHYCARDIA [None]
